FAERS Safety Report 4841693-4 (Version None)
Quarter: 2005Q4

REPORT INFORMATION
  Report Type: 
  Country: None (occurrence: None)
  Receive Date: 20051125
  Receipt Date: 20051107
  Transmission Date: 20060501
  Serious: Yes (Death)
  Sender: FDA-Public Use
  Company Number: 2005-BP-19680RO

PATIENT
  Age: 43 Year
  Sex: 0

DRUGS (3)
  1. OXYCODONE PARA(OXYCODONE/ APAP) [Suspect]
  2. ACETAMINOPHEN/ BUTALBITAL/ CAFFEINE (AXOTAL/ 00727001/) [Suspect]
  3. ETHANOL (ETHANOL) [Suspect]

REACTIONS (2)
  - MULTIPLE DRUG OVERDOSE [None]
  - SUICIDE ATTEMPT [None]
